FAERS Safety Report 6552504-3 (Version None)
Quarter: 2010Q1

REPORT INFORMATION
  Report Type: 
  Country: None (occurrence: None)
  Receive Date: 20100121
  Receipt Date: 20100111
  Transmission Date: 20100710
  Serious: Yes (Death, Hospitalization)
  Sender: FDA-Public Use
  Company Number: 475934

PATIENT
  Age: 77 Year
  Sex: Male

DRUGS (7)
  1. CYTARABINE INJECTION 100 MG/ML ^DBL^ (CYTARABINE) [Suspect]
     Indication: ACUTE MYELOID LEUKAEMIA
     Dosage: 33 MG, 1 IN 1 DAY (DAYS 1-10 OF EACH CYCLE),SUBCUTANEOUS ; 34 MG (1 DAY)
     Route: 058
     Dates: start: 20071224, end: 20080102
  2. CYTARABINE INJECTION 100 MG/ML ^DBL^ (CYTARABINE) [Suspect]
     Indication: ACUTE MYELOID LEUKAEMIA
     Dosage: 33 MG, 1 IN 1 DAY (DAYS 1-10 OF EACH CYCLE),SUBCUTANEOUS ; 34 MG (1 DAY)
     Route: 058
     Dates: start: 20080121, end: 20080130
  3. AMLODIPINE [Concomitant]
  4. (MAGNESIUM OXIDE) [Concomitant]
  5. HYDROXYUREA [Concomitant]
  6. (TRAMADOL) [Concomitant]
  7. LEVOPHED [Concomitant]

REACTIONS (22)
  - ACUTE MYELOID LEUKAEMIA [None]
  - ALTERED STATE OF CONSCIOUSNESS [None]
  - AORTIC CALCIFICATION [None]
  - CALCINOSIS [None]
  - DISSEMINATED INTRAVASCULAR COAGULATION [None]
  - DYSURIA [None]
  - GASTROINTESTINAL ULCER HAEMORRHAGE [None]
  - IRRITABILITY [None]
  - LUNG INFILTRATION [None]
  - MALIGNANT NEOPLASM PROGRESSION [None]
  - PERIPORTAL OEDEMA [None]
  - PLEURAL EFFUSION [None]
  - PULMONARY GRANULOMA [None]
  - RASH [None]
  - REFUSAL OF TREATMENT BY RELATIVE [None]
  - RENAL CYST [None]
  - RESPIRATORY FAILURE [None]
  - SEPTIC SHOCK [None]
  - SPLENIC CYST [None]
  - STRESS ULCER [None]
  - URINE OUTPUT DECREASED [None]
  - WOUND INFECTION [None]
